FAERS Safety Report 4381215-8 (Version None)
Quarter: 2004Q2

REPORT INFORMATION
  Report Type: 
  Country: None (occurrence: None)
  Receive Date: 20040616
  Receipt Date: 20040603
  Transmission Date: 20050107
  Serious: Yes (Hospitalization)
  Sender: FDA-Public Use
  Company Number: 200412747BCC

PATIENT
  Age: 10 Year
  Sex: Female
  Weight: 52.6173 kg

DRUGS (2)
  1. NEO-SYNEPHRINE (PHENYLEPHRINE HYDROCHLORIDE) [Suspect]
     Dosage: NASAL
     Route: 045
     Dates: start: 20040521
  2. CONCERTA [Suspect]
     Dosage: 54 MG, QD, ORAL
     Route: 048
     Dates: start: 20020101

REACTIONS (2)
  - HYPERTENSION [None]
  - PULMONARY OEDEMA [None]
